FAERS Safety Report 17215391 (Version 1)
Quarter: 2019Q4

REPORT INFORMATION
  Report Type: Spontaneous
  Country: FR (occurrence: FR)
  Receive Date: 20191230
  Receipt Date: 20191230
  Transmission Date: 20200122
  Serious: Yes (Hospitalization)
  Sender: FDA-Public Use
  Company Number: FR-ABBVIE-19K-056-3214366-00

PATIENT
  Age: 68 Year
  Sex: Female

DRUGS (1)
  1. VENETOCLAX. [Suspect]
     Active Substance: VENETOCLAX
     Indication: CHRONIC LYMPHOCYTIC LEUKAEMIA
     Route: 048
     Dates: start: 20191107

REACTIONS (2)
  - Sensorimotor disorder [Not Recovered/Not Resolved]
  - Neuritis [Not Recovered/Not Resolved]

NARRATIVE: CASE EVENT DATE: 20191129
